FAERS Safety Report 5153315-6 (Version None)
Quarter: 2006Q4

REPORT INFORMATION
  Report Type: 
  Country: None (occurrence: None)
  Receive Date: 20061117
  Receipt Date: 20061113
  Transmission Date: 20070319
  Serious: Yes (Hospitalization, Other)
  Sender: FDA-Public Use
  Company Number: US-BRISTOL-MYERS SQUIBB COMPANY-13575766

PATIENT
  Age: 8 Decade
  Sex: Female

DRUGS (8)
  1. ORENCIA [Suspect]
     Route: 042
     Dates: start: 20060501
  2. METHOTREXATE [Concomitant]
     Dates: start: 20060601, end: 20061001
  3. ATENOLOL [Concomitant]
  4. DYAZIDE [Concomitant]
  5. DILTIAZEM HCL [Concomitant]
  6. LEVOTHYROXINE SODIUM [Concomitant]
  7. ULTRAM [Concomitant]
  8. PREDNISONE TAB [Concomitant]

REACTIONS (5)
  - DEHYDRATION [None]
  - HEPATITIS B POSITIVE [None]
  - LIVER FUNCTION TEST ABNORMAL [None]
  - NAUSEA [None]
  - VOMITING [None]
